FAERS Safety Report 8608477 (Version 5)
Quarter: 2013Q1

REPORT INFORMATION
  Report Type: Spontaneous
  Country: US (occurrence: US)
  Receive Date: 20120611
  Receipt Date: 20130319
  Transmission Date: 20140127
  Serious: Yes (Hospitalization, Other)
  Sender: FDA-Public Use
  Company Number: US-ROCHE-760840

PATIENT
  Age: 18 Year
  Sex: Female
  Weight: 79.45 kg

DRUGS (1)
  1. ACCUTANE [Suspect]
     Indication: ACNE
     Route: 065
     Dates: start: 199507, end: 19951231

REACTIONS (10)
  - Crohn^s disease [Unknown]
  - Pulmonary embolism [Unknown]
  - Anxiety [Unknown]
  - Deep vein thrombosis [Unknown]
  - Inflammatory bowel disease [Unknown]
  - Large intestine polyp [Unknown]
  - Anal fissure [Unknown]
  - Depression [Unknown]
  - Back pain [Unknown]
  - Dry skin [Unknown]
